FAERS Safety Report 19785117 (Version 1)
Quarter: 2021Q3

REPORT INFORMATION
  Report Type: Spontaneous
  Country: US (occurrence: US)
  Receive Date: 20210903
  Receipt Date: 20210903
  Transmission Date: 20211014
  Serious: Yes (Other)
  Sender: FDA-Public Use
  Company Number: None

PATIENT
  Sex: Male

DRUGS (2)
  1. MELATONIN [Suspect]
     Active Substance: MELATONIN
  2. XANAX [Suspect]
     Active Substance: ALPRAZOLAM

REACTIONS (1)
  - Drug ineffective [None]
